FAERS Safety Report 9059377 (Version 1)
Quarter: 2013Q1

REPORT INFORMATION
  Report Type: Spontaneous
  Country: US (occurrence: US)
  Receive Date: 20130211
  Receipt Date: 20130211
  Transmission Date: 20140127
  Serious: Yes (Hospitalization)
  Sender: FDA-Public Use
  Company Number: US-GLAXOSMITHKLINE-A0814505A

PATIENT
  Age: 73 Year
  Sex: Female
  Weight: 71.4 kg

DRUGS (1)
  1. AVANDIA [Suspect]
     Indication: TYPE 2 DIABETES MELLITUS
     Route: 048
     Dates: end: 200802

REACTIONS (6)
  - Myocardial infarction [Recovered/Resolved]
  - Cardiac failure congestive [Unknown]
  - Lacunar infarction [Unknown]
  - Transient ischaemic attack [Unknown]
  - Myocardial ischaemia [Unknown]
  - Coronary artery disease [Unknown]
